FAERS Safety Report 23891045 (Version 1)
Quarter: 2024Q2

REPORT INFORMATION
  Report Type: Spontaneous
  Country: CA (occurrence: CA)
  Receive Date: 20240523
  Receipt Date: 20240523
  Transmission Date: 20240715
  Serious: Yes (Other)
  Sender: FDA-Public Use
  Company Number: CA-BIOMARINAP-CA-2024-158063

PATIENT

DRUGS (2)
  1. VIMIZIM [Suspect]
     Active Substance: ELOSULFASE ALFA
     Indication: Mucopolysaccharidosis IV
     Dosage: 2 MILLIGRAM/KILOGRAM, QW
     Route: 042
     Dates: start: 20210319
  2. SAXENDA [Concomitant]
     Active Substance: LIRAGLUTIDE
     Indication: Weight loss diet

REACTIONS (11)
  - Deafness [Unknown]
  - Language disorder [Unknown]
  - Discomfort [Recovered/Resolved]
  - Oropharyngeal discomfort [Recovered/Resolved]
  - Hot flush [Recovered/Resolved]
  - Sense of oppression [Recovered/Resolved]
  - Malaise [Recovered/Resolved]
  - Dyspnoea [Recovered/Resolved]
  - Gastrooesophageal reflux disease [Unknown]
  - Eructation [Unknown]
  - Hypertension [Unknown]

NARRATIVE: CASE EVENT DATE: 20240517
